FAERS Safety Report 8004890-5 (Version None)
Quarter: 2011Q4

REPORT INFORMATION
  Report Type: 
  Country: None (occurrence: None)
  Receive Date: 20111223
  Receipt Date: 20111223
  Transmission Date: 20120403
  Serious: No
  Sender: FDA-Public Use
  Company Number: None

PATIENT
  Age: 4 Month
  Sex: Female
  Weight: 5.4431 kg

DRUGS (1)
  1. CEPHALEXIN [Suspect]
     Indication: URINARY TRACT INFECTION
     Dosage: 3 AND 1/2 ML
     Route: 048
     Dates: start: 20111205, end: 20111205

REACTIONS (3)
  - ERYTHEMA [None]
  - RASH [None]
  - PALLOR [None]
